FAERS Safety Report 25634547 (Version 1)
Quarter: 2025Q3

REPORT INFORMATION
  Report Type: Spontaneous
  Country: US (occurrence: US)
  Receive Date: 20250801
  Receipt Date: 20250801
  Transmission Date: 20251020
  Serious: No
  Sender: Tarsus Pharmaceuticals
  Company Number: US-TARSUS PHARMACEUTICALS-TSP-US-2025-000721

PATIENT

DRUGS (1)
  1. XDEMVY [Suspect]
     Active Substance: LOTILANER
     Indication: Ocular demodicosis
     Dosage: 1 DROP, BID
     Route: 047
     Dates: start: 20250525

REACTIONS (11)
  - Upper-airway cough syndrome [Not Recovered/Not Resolved]
  - Dysphagia [Unknown]
  - Cough [Unknown]
  - Oropharyngeal pain [Unknown]
  - Dysphonia [Unknown]
  - Pharyngeal swelling [Unknown]
  - Headache [Unknown]
  - Blood pressure increased [Recovering/Resolving]
  - Pyrexia [Unknown]
  - Sinusitis [Not Recovered/Not Resolved]
  - Middle ear effusion [Unknown]

NARRATIVE: CASE EVENT DATE: 20240604
